FAERS Safety Report 5380311-6 (Version None)
Quarter: 2007Q3

REPORT INFORMATION
  Report Type: 
  Country: None (occurrence: None)
  Receive Date: 20070706
  Receipt Date: 20070516
  Transmission Date: 20080115
  Serious: No
  Sender: FDA-Public Use
  Company Number: A0651591A

PATIENT
  Age: 55 Year
  Sex: Female

DRUGS (8)
  1. TYKERB [Suspect]
     Indication: BREAST CANCER
     Dosage: 1250MG PER DAY
     Route: 048
     Dates: start: 20070417, end: 20070427
  2. TAXOTERE [Concomitant]
  3. PREDNISONE TAB [Concomitant]
  4. NEXIUM [Concomitant]
  5. ZOLOFT [Concomitant]
  6. CELEBREX [Concomitant]
  7. ZOMETA [Concomitant]
     Route: 042
  8. IMODIUM [Concomitant]

REACTIONS (6)
  - DIARRHOEA [None]
  - ILL-DEFINED DISORDER [None]
  - NASAL OEDEMA [None]
  - OESOPHAGITIS [None]
  - PURPURA [None]
  - RASH [None]
